FAERS Safety Report 20779306 (Version 2)
Quarter: 2022Q4

REPORT INFORMATION
  Report Type: Spontaneous
  Country: US (occurrence: US)
  Receive Date: 20220503
  Receipt Date: 20221111
  Transmission Date: 20230113
  Serious: No
  Sender: FDA-Public Use
  Company Number: US-PFIZER INC-202101040439

PATIENT
  Sex: Male

DRUGS (3)
  1. RAPAMUNE [Suspect]
     Active Substance: SIROLIMUS
     Dosage: 1 MG, 1X/DAY
  2. RAPAMUNE [Suspect]
     Active Substance: SIROLIMUS
     Dosage: 0.5 MG, DAILY (TAKES 3 TABLETS DAILY, ALTERNATING WITH 2 TABLETS DAILY)
  3. JAKAFI [Concomitant]
     Active Substance: RUXOLITINIB
     Dosage: UNK

REACTIONS (4)
  - Blood glucose increased [Unknown]
  - Pain in extremity [Unknown]
  - Glycosylated haemoglobin increased [Unknown]
  - Intentional product misuse [Unknown]

NARRATIVE: CASE EVENT DATE: 20210101
